FAERS Safety Report 5056440-3 (Version None)
Quarter: 2006Q3

REPORT INFORMATION
  Report Type: 
  Country: None (occurrence: None)
  Receive Date: 20060720
  Receipt Date: 20060710
  Transmission Date: 20061208
  Serious: Yes (Other)
  Sender: FDA-Public Use
  Company Number: US-SANOFI-SYNTHELABO-A03200604401

PATIENT
  Age: 62 Year
  Sex: Female

DRUGS (4)
  1. VERAPAMIL [Concomitant]
     Route: 048
  2. ZOLOFT [Concomitant]
     Route: 048
  3. AMBIEN [Suspect]
     Indication: INSOMNIA
     Route: 048
     Dates: start: 20050701, end: 20060701
  4. NEXIUM [Concomitant]
     Route: 048

REACTIONS (3)
  - ABNORMAL BEHAVIOUR [None]
  - AMNESIA [None]
  - PYROMANIA [None]
